FAERS Safety Report 21350752 (Version 1)
Quarter: 2022Q3

REPORT INFORMATION
  Report Type: Spontaneous
  Country: PL (occurrence: PL)
  Receive Date: 20220919
  Receipt Date: 20220919
  Transmission Date: 20221027
  Serious: Yes (Other)
  Sender: FDA-Public Use
  Company Number: None

PATIENT
  Age: 41 Year
  Sex: Male
  Weight: 101 kg

DRUGS (1)
  1. SULFASALAZINE [Suspect]
     Active Substance: SULFASALAZINE
     Dosage: 1500 MG, ALTERNATE DAY
     Route: 048

REACTIONS (11)
  - Rash [Recovering/Resolving]
  - Erythema [Recovering/Resolving]
  - Pyrexia [Recovering/Resolving]
  - Lip oedema [Recovering/Resolving]
  - Swelling face [Recovering/Resolving]
  - Ear swelling [Recovering/Resolving]
  - Lip swelling [Recovering/Resolving]
  - Drug eruption [Recovering/Resolving]
  - Eczema [Recovering/Resolving]
  - Off label use [Unknown]
  - Product use issue [Unknown]

NARRATIVE: CASE EVENT DATE: 20220719
